FAERS Safety Report 7655057-1 (Version None)
Quarter: 2011Q3

REPORT INFORMATION
  Report Type: 
  Country: None (occurrence: None)
  Receive Date: 20110728
  Receipt Date: 20110713
  Transmission Date: 20111222
  Serious: Yes (Hospitalization)
  Sender: FDA-Public Use
  Company Number: CLO-11-06

PATIENT
  Age: 6 Year
  Sex: Female

DRUGS (5)
  1. BUPIVACAINE HCL [Concomitant]
  2. CLONIDINE [Suspect]
     Indication: PRODUCT USED FOR UNKNOWN INDICATION
  3. ACETAMINOPHEN [Concomitant]
  4. FENTANYL [Concomitant]
  5. LEVOBUPICAINE [Concomitant]

REACTIONS (1)
  - FLUSHING [None]
